FAERS Safety Report 5159430-5 (Version None)
Quarter: 2006Q4

REPORT INFORMATION
  Report Type: 
  Country: None (occurrence: None)
  Receive Date: 20061122
  Receipt Date: 20061122
  Transmission Date: 20070319
  Serious: Yes (Death)
  Sender: FDA-Public Use
  Company Number: None

PATIENT
  Age: 9 Year
  Sex: Female
  Weight: 22 kg

DRUGS (2)
  1. CARBOPLATIN [Suspect]
     Indication: ANAPLASTIC ASTROCYTOMA
     Dosage: 510 MG QD IV DRIP
     Route: 041
     Dates: start: 20061026, end: 20061027
  2. TEMOZOLOMIDE [Suspect]
     Indication: ANAPLASTIC ASTROCYTOMA
     Dosage: 170 MG QHS PO
     Route: 048
     Dates: start: 20061026, end: 20061030

REACTIONS (9)
  - ACUTE RESPIRATORY DISTRESS SYNDROME [None]
  - CANDIDIASIS [None]
  - CARDIAC FAILURE [None]
  - HEADACHE [None]
  - PYREXIA [None]
  - RESPIRATORY DISTRESS [None]
  - RESPIRATORY FAILURE [None]
  - SEPTIC SHOCK [None]
  - VOMITING [None]
